FAERS Safety Report 9050988 (Version 1)
Quarter: 2013Q1

REPORT INFORMATION
  Report Type: Spontaneous
  Country: AU (occurrence: AU)
  Receive Date: 20130205
  Receipt Date: 20130205
  Transmission Date: 20140127
  Serious: Yes (Other)
  Sender: FDA-Public Use
  Company Number: AU-PFIZER INC-2013041142

PATIENT
  Age: 51 Year
  Sex: Male

DRUGS (2)
  1. CARBOPLATIN [Suspect]
     Indication: LUNG ADENOCARCINOMA
  2. VINORELBINE [Suspect]
     Indication: LUNG ADENOCARCINOMA

REACTIONS (7)
  - Second primary malignancy [Unknown]
  - Papillary thyroid cancer [Unknown]
  - Second primary malignancy [Unknown]
  - Rectal adenocarcinoma [Unknown]
  - Rectal haemorrhage [Unknown]
  - Disease progression [Unknown]
  - Lung adenocarcinoma [Unknown]
